FAERS Safety Report 5737066-2 (Version None)
Quarter: 2008Q2

REPORT INFORMATION
  Report Type: 
  Country: None (occurrence: None)
  Receive Date: 20080514
  Receipt Date: 20080505
  Transmission Date: 20081010
  Serious: Yes (Death, Other)
  Sender: FDA-Public Use
  Company Number: US-BAYER-200812445NA

PATIENT
  Sex: Male

DRUGS (5)
  1. MAGNEVIST [Suspect]
     Route: 042
     Dates: start: 20050609, end: 20050609
  2. MAGNEVIST [Suspect]
     Route: 042
     Dates: start: 20050610, end: 20050610
  3. MAGNEVIST [Suspect]
     Route: 042
     Dates: start: 20050909, end: 20050909
  4. MAGNEVIST [Suspect]
     Route: 042
     Dates: start: 20050914, end: 20050914
  5. OMNISCAN [Suspect]
     Indication: DRUG USE FOR UNKNOWN INDICATION
     Dates: start: 20031130, end: 20031130

REACTIONS (3)
  - FIBROSIS [None]
  - INJURY [None]
  - NEPHROGENIC SYSTEMIC FIBROSIS [None]
